FAERS Safety Report 20620800 (Version 1)
Quarter: 2022Q1

REPORT INFORMATION
  Report Type: Spontaneous
  Country: US (occurrence: US)
  Receive Date: 20220322
  Receipt Date: 20220322
  Transmission Date: 20220423
  Serious: No
  Sender: FDA-Public Use
  Company Number: US-GLENMARK PHARMACEUTICALS-2022GMK070079

PATIENT

DRUGS (3)
  1. FLUCONAZOLE [Suspect]
     Active Substance: FLUCONAZOLE
     Indication: Urinary tract infection fungal
     Dosage: 150 MILLIGRAM, QD, 2 YEARS AGO FROM THE REPORT
     Route: 065
  2. FLUCONAZOLE [Suspect]
     Active Substance: FLUCONAZOLE
     Indication: Fungal infection
     Dosage: 1 DOSAGE FORM (1 IN EVERY 72 HOURS) (RESTARTED AGAIN)
     Route: 048
     Dates: start: 202201
  3. FLUCONAZOLE [Suspect]
     Active Substance: FLUCONAZOLE
     Dosage: 150 MILLIGRAM, QD
     Route: 065
     Dates: start: 202201

REACTIONS (1)
  - Inappropriate schedule of product administration [Unknown]
